FAERS Safety Report 22259652 (Version 1)
Quarter: 2023Q2

REPORT INFORMATION
  Report Type: Spontaneous
  Country: US (occurrence: None)
  Receive Date: 20230425
  Receipt Date: 20230425
  Transmission Date: 20230722
  Serious: No
  Sender: FDA-Public Use
  Company Number: None

PATIENT
  Age: 73 Year
  Sex: Female
  Weight: 89.36 kg

DRUGS (12)
  1. IBRANCE [Suspect]
     Active Substance: PALBOCICLIB
     Indication: Breast cancer female
     Dosage: FREQUENCY : DAILY;?
     Route: 048
     Dates: start: 20220624
  2. AMLODIPINE [Concomitant]
     Active Substance: AMLODIPINE BESYLATE
  3. ATORVASTATIN [Concomitant]
     Active Substance: ATORVASTATIN
  4. GARLIC [Concomitant]
     Active Substance: GARLIC
  5. GLUCOSAMINE [Concomitant]
     Active Substance: GLUCOSAMINE
  6. LISINOPRIL [Concomitant]
     Active Substance: LISINOPRIL
  7. MAGNESIUM OXIDE [Concomitant]
     Active Substance: MAGNESIUM OXIDE
  8. METOPROLOL [Concomitant]
     Active Substance: METOPROLOL
  9. MULTI VITAMIN [Concomitant]
  10. OZEMPIC [Concomitant]
     Active Substance: SEMAGLUTIDE
  11. CALCIUM [Concomitant]
     Active Substance: CALCIUM
  12. SILVADENE [Concomitant]
     Active Substance: SILVER SULFADIAZINE

REACTIONS (1)
  - Leukopenia [None]
